FAERS Safety Report 24132923 (Version 1)
Quarter: 2024Q3

REPORT INFORMATION
  Report Type: Spontaneous
  Country: NL (occurrence: None)
  Receive Date: 20240724
  Receipt Date: 20240724
  Transmission Date: 20241016
  Serious: Yes (Death)
  Sender: ASTRAZENECA
  Company Number: 2024A164867

PATIENT
  Age: 66 Year
  Sex: Male
  Weight: 95 kg

DRUGS (6)
  1. DAPAGLIFLOZIN [Suspect]
     Active Substance: DAPAGLIFLOZIN
     Indication: Diabetes mellitus
     Dosage: 1 PER DAY,
     Route: 048
     Dates: start: 20240706, end: 20240715
  2. PAROXETINE [Concomitant]
     Active Substance: PAROXETINE
     Dosage: 2X DAILY
  3. NOVORAPID [Concomitant]
     Active Substance: INSULIN ASPART
     Dosage: 36-10-40 UNITS
  4. NIFEDIPINE [Concomitant]
     Active Substance: NIFEDIPINE
     Dosage: 1X DAILY
  5. INDAPAMIDE [Concomitant]
     Active Substance: INDAPAMIDE
     Dosage: 1X DAILY
  6. ATORVASTATIN [Concomitant]
     Active Substance: ATORVASTATIN
     Dosage: 1X DAY

REACTIONS (2)
  - Fall [Fatal]
  - Dizziness [Fatal]
